FAERS Safety Report 21301159 (Version 1)
Quarter: 2022Q3

REPORT INFORMATION
  Report Type: Spontaneous
  Country: DK (occurrence: DK)
  Receive Date: 20220907
  Receipt Date: 20220907
  Transmission Date: 20221027
  Serious: Yes (Hospitalization)
  Sender: FDA-Public Use
  Company Number: None

PATIENT
  Age: 57 Year
  Sex: Male

DRUGS (1)
  1. DICLOXACILLIN SODIUM [Suspect]
     Active Substance: DICLOXACILLIN SODIUM
     Indication: Eczema infected
     Dosage: 1500 MG, QD
     Route: 048
     Dates: start: 20201005, end: 202010

REACTIONS (8)
  - Dizziness [Recovered/Resolved]
  - Palpitations [Recovered/Resolved]
  - Syncope [Recovered/Resolved]
  - Anaphylactic shock [Recovered/Resolved]
  - Chest pain [Recovered/Resolved]
  - Dyspnoea [Not Recovered/Not Resolved]
  - Urticaria [Recovered/Resolved]
  - Hypotension [Recovered/Resolved]

NARRATIVE: CASE EVENT DATE: 20201005
